FAERS Safety Report 8888754 (Version 1)
Quarter: 2012Q4

REPORT INFORMATION
  Report Type: 
  Country: JP (occurrence: JP)
  Receive Date: 20121106
  Receipt Date: 20121106
  Transmission Date: 20130627
  Serious: Yes (Hospitalization, Other)
  Sender: FDA-Public Use
  Company Number: PHHY2012JP100743

PATIENT

DRUGS (1)
  1. GILENYA [Suspect]
     Dosage: 0.5 mg, UNK
     Route: 048

REACTIONS (3)
  - Heart rate decreased [Unknown]
  - Dizziness [Unknown]
  - Insomnia [Unknown]
